FAERS Safety Report 7934161-4 (Version None)
Quarter: 2011Q4

REPORT INFORMATION
  Report Type: 
  Country: None (occurrence: None)
  Receive Date: 20111122
  Receipt Date: 20111109
  Transmission Date: 20120403
  Serious: Yes (Hospitalization)
  Sender: FDA-Public Use
  Company Number: DE-CELGENEUS-062-20785-11090011

PATIENT
  Age: 79 Year
  Sex: Female
  Weight: 63 kg

DRUGS (4)
  1. MELPHALAN HYDROCHLORIDE [Suspect]
     Indication: PLASMACYTOMA
     Dosage: 15 MILLIGRAM
     Route: 048
     Dates: start: 20110711, end: 20110811
  2. MORPHINE [Concomitant]
     Indication: PAIN
     Route: 058
  3. PREDNISONE TAB [Suspect]
     Indication: PLASMACYTOMA
     Dosage: 100 MILLIGRAM
     Route: 048
     Dates: start: 20110711, end: 20110811
  4. THALIDOMIDE [Suspect]
     Indication: PLASMACYTOMA
     Dosage: 200 MILLIGRAM
     Route: 048
     Dates: start: 20110711, end: 20110803

REACTIONS (11)
  - DEHYDRATION [None]
  - GENERAL PHYSICAL HEALTH DETERIORATION [None]
  - OSTEOLYSIS [None]
  - PNEUMONIA ASPIRATION [None]
  - ANAEMIA [None]
  - DECREASED APPETITE [None]
  - ANXIETY [None]
  - MALNUTRITION [None]
  - DYSPEPSIA [None]
  - DYSPHAGIA [None]
  - CYANOSIS [None]
